FAERS Safety Report 24950892 (Version 2)
Quarter: 2025Q3

REPORT INFORMATION
  Report Type: Spontaneous
  Country: CN (occurrence: None)
  Receive Date: 20250210
  Receipt Date: 20250803
  Transmission Date: 20251020
  Serious: Yes (Other)
  Sender: ALEXION PHARMACEUTICALS
  Company Number: CN-ASTRAZENECA-202502CHN004408CN

PATIENT
  Age: 45 Year
  Sex: Male

DRUGS (3)
  1. BRILINTA [Suspect]
     Active Substance: TICAGRELOR
     Indication: Anticoagulant therapy
     Dosage: 90 MILLIGRAM, BID
     Dates: start: 20250126, end: 20250127
  2. HEPARIN CALCIUM [Suspect]
     Active Substance: HEPARIN CALCIUM
     Indication: Anticoagulant therapy
     Dosage: 250 DOSAGE FORM, BID
     Dates: start: 20250126, end: 20250127
  3. ASPIRIN [Suspect]
     Active Substance: ASPIRIN
     Indication: Anticoagulant therapy
     Dosage: 0.1 GRAM, QD
     Dates: start: 20250126, end: 20250127

REACTIONS (1)
  - Coagulation test abnormal [Unknown]

NARRATIVE: CASE EVENT DATE: 20250127
